FAERS Safety Report 9675412 (Version 2)
Quarter: 2013Q4

REPORT INFORMATION
  Report Type: Report from Study
  Country: JP (occurrence: JP)
  Receive Date: 20131107
  Receipt Date: 20131107
  Transmission Date: 20140711
  Serious: Yes (Other)
  Sender: FDA-Public Use
  Company Number: JP-MSD-1207JPN005418

PATIENT
  Age: 67 Year
  Sex: Male
  Weight: 64 kg

DRUGS (7)
  1. PEGINTRON [Suspect]
     Indication: HEPATITIS C
     Dosage: 1.5 MCG/KG/WEEK
     Route: 058
     Dates: start: 20120510
  2. REBETOL [Suspect]
     Indication: HEPATITIS C
     Dosage: 800 MG, QD
     Route: 048
     Dates: start: 20120510
  3. TELAPREVIR [Suspect]
     Indication: HEPATITIS C
     Dosage: 1.5 G, QD
     Route: 048
     Dates: start: 20120510, end: 20120512
  4. TELAPREVIR [Suspect]
     Dosage: 750 MG, UNK
     Route: 048
     Dates: start: 20120513, end: 20120530
  5. TELAPREVIR [Suspect]
     Dosage: 1 G, QD
     Route: 048
     Dates: start: 20120531, end: 20120605
  6. TELAPREVIR [Suspect]
     Dosage: 1.5 G, QD
     Route: 048
     Dates: start: 20120606
  7. JUZEN-TAIHO-TO [Concomitant]

REACTIONS (2)
  - Erythema [Not Recovered/Not Resolved]
  - Renal disorder [Recovering/Resolving]
